FAERS Safety Report 10080238 (Version 2)
Quarter: 2014Q2

REPORT INFORMATION
  Report Type: Spontaneous
  Country: US (occurrence: US)
  Receive Date: 20140415
  Receipt Date: 20140415
  Transmission Date: 20141212
  Serious: Yes (Death)
  Sender: FDA-Public Use
  Company Number: US-BAXTER-2014BAX017638

PATIENT
  Sex: Male

DRUGS (1)
  1. 0.9% SODIUM CHLORIDE INJECTION [Suspect]
     Indication: HAEMODIALYSIS
     Route: 010

REACTIONS (1)
  - Death [Fatal]
